FAERS Safety Report 5259842-5 (Version None)
Quarter: 2007Q1

REPORT INFORMATION
  Report Type: 
  Country: None (occurrence: None)
  Receive Date: 20070307
  Receipt Date: 20070222
  Transmission Date: 20070707
  Serious: Yes (Death, Other)
  Sender: FDA-Public Use
  Company Number: 2007US000441

PATIENT
  Age: 41 Year
  Sex: Male

DRUGS (2)
  1. PROGRAF [Suspect]
     Indication: PROPHYLAXIS
  2. METHOTREXATE [Concomitant]

REACTIONS (8)
  - ACUTE GRAFT VERSUS HOST DISEASE IN INTESTINE [None]
  - BULBAR PALSY [None]
  - DYSARTHRIA [None]
  - JC VIRUS INFECTION [None]
  - LYMPHOPENIA [None]
  - NO THERAPEUTIC RESPONSE [None]
  - PROGRESSIVE MULTIFOCAL LEUKOENCEPHALOPATHY [None]
  - QUADRIPARESIS [None]
